FAERS Safety Report 9630682 (Version 1)
Quarter: 2013Q4

REPORT INFORMATION
  Report Type: Spontaneous
  Country: US (occurrence: None)
  Receive Date: 20131015
  Receipt Date: 20131015
  Transmission Date: 20140711
  Serious: Yes (Death)
  Sender: FDA-Public Use
  Company Number: ALK-2013-002040

PATIENT
  Age: 24 Year
  Sex: Male

DRUGS (1)
  1. VIVITROL [Suspect]
     Indication: DRUG DEPENDENCE
     Route: 030
     Dates: start: 20130404, end: 20130531

REACTIONS (4)
  - Overdose [None]
  - Drug abuse [None]
  - Drug ineffective [None]
  - Product quality issue [None]
